FAERS Safety Report 5891093-3 (Version None)
Quarter: 2008Q3

REPORT INFORMATION
  Report Type: 
  Country: None (occurrence: None)
  Receive Date: 20080922
  Receipt Date: 20080905
  Transmission Date: 20090109
  Serious: Yes (Death, Other)
  Sender: FDA-Public Use
  Company Number: US-JNJFOC-20080705637

PATIENT
  Sex: Male
  Weight: 89.36 kg

DRUGS (2)
  1. FENTANYL [Suspect]
     Indication: PAIN
     Route: 062
  2. HYDROCODONE BITARTRATE [Concomitant]

REACTIONS (2)
  - DEVICE FAILURE [None]
  - DRUG TOXICITY [None]
